FAERS Safety Report 10343688 (Version 1)
Quarter: 2014Q3

REPORT INFORMATION
  Report Type: Spontaneous
  Country: CH (occurrence: CH)
  Receive Date: 20140725
  Receipt Date: 20140725
  Transmission Date: 20150326
  Serious: Yes (Life-Threatening, Hospitalization)
  Sender: FDA-Public Use
  Company Number: CH-ASTRAZENECA-2014SE53324

PATIENT
  Age: 78 Year
  Sex: Male
  Weight: 71 kg

DRUGS (14)
  1. MEPHANOL [Suspect]
     Active Substance: ALLOPURINOL
     Indication: GOUT
     Route: 048
     Dates: end: 20140706
  2. TOREM [Suspect]
     Active Substance: TORSEMIDE
     Route: 048
     Dates: end: 20140706
  3. BACTRIM [Suspect]
     Active Substance: SULFAMETHOXAZOLE\TRIMETHOPRIM
     Indication: CYSTOSCOPY
     Route: 048
     Dates: start: 20140626, end: 20140701
  4. ALDACTONE [Suspect]
     Active Substance: SPIRONOLACTONE
     Route: 048
     Dates: end: 20140706
  5. SYMBICORT [Concomitant]
     Active Substance: BUDESONIDE\FORMOTEROL FUMARATE DIHYDRATE
     Route: 055
  6. METO ZEROK [Suspect]
     Active Substance: METOPROLOL SUCCINATE
     Indication: CORONARY ARTERY DISEASE
     Route: 048
     Dates: end: 20140706
  7. AMOXICILLIN AND CLAVULANATE POTASSIUM [Concomitant]
     Active Substance: AMOXICILLIN\CLAVULANATE POTASSIUM
     Indication: PROSTATITIS
     Dosage: 1 TOTAL
     Dates: start: 20140701, end: 20140701
  8. ALFUZOSIN [Suspect]
     Active Substance: ALFUZOSIN
     Indication: PROSTATE CANCER
     Route: 048
     Dates: end: 20140706
  9. ASPIRIN CARDIO [Concomitant]
     Active Substance: ASPIRIN
     Indication: CORONARY ARTERY DISEASE
     Route: 048
  10. PRAVALOTIN MEPHA [Suspect]
     Active Substance: PRAVASTATIN SODIUM
     Indication: CORONARY ARTERY DISEASE
     Route: 048
     Dates: end: 20140706
  11. LANTUS [Concomitant]
     Active Substance: INSULIN GLARGINE
     Indication: INSULIN-REQUIRING TYPE 2 DIABETES MELLITUS
     Route: 058
  12. NEXIUM [Suspect]
     Active Substance: ESOMEPRAZOLE MAGNESIUM
     Route: 048
     Dates: end: 20140706
  13. LISITRIL [Suspect]
     Active Substance: LISINOPRIL
     Indication: CORONARY ARTERY DISEASE
     Route: 048
     Dates: end: 20140706
  14. ACIDEM FOLICUM STREULI [Concomitant]
     Route: 048

REACTIONS (5)
  - Acute myocardial infarction [None]
  - Hypophosphataemia [None]
  - Stevens-Johnson syndrome [Recovering/Resolving]
  - Bacterial sepsis [None]
  - Haematuria [None]

NARRATIVE: CASE EVENT DATE: 20140701
